FAERS Safety Report 8103154-9 (Version None)
Quarter: 2012Q1

REPORT INFORMATION
  Report Type: 
  Country: None (occurrence: None)
  Receive Date: 20120127
  Receipt Date: 20120116
  Transmission Date: 20120608
  Serious: Yes (Life-Threatening)
  Sender: FDA-Public Use
  Company Number: 1166299

PATIENT
  Sex: Male

DRUGS (14)
  1. METHADONE HCL [Suspect]
     Indication: DRUG DEPENDENCE
     Dosage: 50 MG ONCE DAILY, UNKNOWN, ORAL
     Route: 048
  2. MORPHINE [Suspect]
     Indication: PAIN
     Dosage: 5-10 MG, UNKNOWN, ORAL
     Route: 048
  3. ACETAMINOPHEN W/ CODEINE [Suspect]
     Indication: PAIN
     Dosage: 325 MG/30 MG, 1 TO 2  TABS Q4H, PRN, UNKNOWN325 MG/30 MG, 1 TO 2 TABS Q4H PRN )UNKNOWN) ORAL,
     Route: 048
  4. FOLIC ACID [Concomitant]
  5. MORPHINE SULFATE [Suspect]
     Indication: PAIN
     Dosage: 5-10 NG Q3H AS NEEDED, UNKNOWN, SUBCUTANEOUS 2 MG Q1H PRN (UNKNOWN) INTRAVENOUS (NOT OTHERWISE SPECI
     Route: 058
  6. DALTEPARIN SODIUM [Concomitant]
  7. THIAMINE HCL [Concomitant]
  8. CIPROFLOXACIN [Suspect]
     Indication: PNEUMONIA ASPIRATION
     Dosage: 400 MG Q12H, UNKNOWN, INTRAVENOUS (NOT OTHERWISE SPECIFIED)
     Route: 042
  9. CLINDAMYCIN [Concomitant]
  10. CEFUROXIME [Concomitant]
  11. IPRATROPIUM BROMIDE [Concomitant]
  12. ALBUTEROL SULFATE AUTOHALER [Concomitant]
  13. (OXYGEN) [Concomitant]
  14. (METHOTRIMEPRAZINE /00038601/) [Suspect]
     Indication: PRODUCT USED FOR UNKNOWN INDICATION
     Dosage: 10-15 MG AT BEDTIME AS NEEDE, UNKNOWN, ORAL
     Route: 048

REACTIONS (11)
  - PNEUMONIA ASPIRATION [None]
  - TOXICITY TO VARIOUS AGENTS [None]
  - PLEURAL EFFUSION [None]
  - ROAD TRAFFIC ACCIDENT [None]
  - BLOOD PRESSURE SYSTOLIC INCREASED [None]
  - MIOSIS [None]
  - DEPRESSED LEVEL OF CONSCIOUSNESS [None]
  - ATELECTASIS [None]
  - ANKLE FRACTURE [None]
  - RESPIRATORY FAILURE [None]
  - INHIBITORY DRUG INTERACTION [None]
